FAERS Safety Report 25794112 (Version 1)
Quarter: 2025Q3

REPORT INFORMATION
  Report Type: Spontaneous
  Country: IR (occurrence: IR)
  Receive Date: 20250912
  Receipt Date: 20250912
  Transmission Date: 20251021
  Serious: Yes (Life-Threatening, Other)
  Sender: ACCORD
  Company Number: IR-MLMSERVICE-20250825-PI625052-00101-1

PATIENT
  Age: 22 Year
  Sex: Female

DRUGS (4)
  1. CISPLATIN [Suspect]
     Active Substance: CISPLATIN
     Indication: Ovarian germ cell tumour mixed
     Dosage: 20 MG/M 2 /DAY IV OVER 30 MIN, DAYS 1-5, 4 CYCLES
     Route: 042
  2. ETOPOSIDE [Concomitant]
     Active Substance: ETOPOSIDE
     Indication: Ovarian germ cell tumour mixed
     Dosage: 100 MG/M 2 /DAY IV OVER 45 MIN, DAYS 1-5, 4 CYCLES GIVEN
     Route: 042
  3. BLEOMYCIN [Concomitant]
     Active Substance: BLEOMYCIN SULFATE
     Indication: Ovarian germ cell tumour mixed
     Dosage: 30 UNITS IV ON DAYS 2, 9, AND 16
     Route: 042
  4. HYDROCORTISONE [Concomitant]
     Active Substance: HYDROCORTISONE
     Indication: Ovarian germ cell tumour mixed
     Route: 042

REACTIONS (2)
  - Acute myeloid leukaemia [Unknown]
  - Infection [Unknown]
